FAERS Safety Report 22041517 (Version 1)
Quarter: 2023Q1

REPORT INFORMATION
  Report Type: Spontaneous
  Country: US (occurrence: US)
  Receive Date: 20230227
  Receipt Date: 20230227
  Transmission Date: 20230417
  Serious: No
  Sender: FDA-Public Use
  Company Number: US-PFIZER INC-202300058924

PATIENT
  Age: 59 Year
  Sex: Female

DRUGS (2)
  1. GENTAMICIN SULFATE [Suspect]
     Active Substance: GENTAMICIN SULFATE
     Dosage: GENTAMYCIN SULFATE SOLUTION WILL GO INTO HER NEBULIZER AND GO DIRECTLY TO LUNGS
     Route: 055
  2. FARESTON [Concomitant]
     Active Substance: TOREMIFENE CITRATE
     Indication: Breast cancer
     Dosage: UNK

REACTIONS (2)
  - Off label use [Unknown]
  - Drug ineffective [Unknown]
